FAERS Safety Report 24405328 (Version 1)
Quarter: 2024Q4

REPORT INFORMATION
  Report Type: Spontaneous
  Country: US (occurrence: US)
  Receive Date: 20241007
  Receipt Date: 20241007
  Transmission Date: 20250115
  Serious: Yes (Hospitalization, Other)
  Sender: DR REDDYS
  Company Number: US-MLMSERVICE-20240923-PI205609-00175-1

PATIENT
  Age: 77 Year
  Sex: Female

DRUGS (1)
  1. HEPARIN [Suspect]
     Active Substance: HEPARIN SODIUM
     Indication: Anticoagulant therapy

REACTIONS (2)
  - Brain compression [Recovering/Resolving]
  - Cerebral haemorrhage [Recovering/Resolving]
